FAERS Safety Report 17353222 (Version 2)
Quarter: 2020Q1

REPORT INFORMATION
  Report Type: Spontaneous
  Country: US (occurrence: US)
  Receive Date: 20200131
  Receipt Date: 20200205
  Transmission Date: 20200409
  Serious: Yes (Hospitalization)
  Sender: FDA-Public Use
  Company Number: US-SPARK THERAPEUTICS, INC.-US-SPK-20-00009

PATIENT
  Age: 2 Year
  Sex: Female

DRUGS (4)
  1. LUXTURNA [Suspect]
     Active Substance: VORETIGENE NEPARVOVEC-RZYL
     Indication: PRODUCT USED FOR UNKNOWN INDICATION
     Dates: start: 20190918, end: 20190918
  2. LUXTURNA [Suspect]
     Active Substance: VORETIGENE NEPARVOVEC-RZYL
     Dates: start: 20191002, end: 20191002
  3. LUXTURNA [Suspect]
     Active Substance: VORETIGENE NEPARVOVEC-RZYL
     Indication: PRODUCT USED FOR UNKNOWN INDICATION
     Dates: start: 20190918, end: 20190918
  4. LUXTURNA [Suspect]
     Active Substance: VORETIGENE NEPARVOVEC-RZYL
     Dates: start: 20191002, end: 20191002

REACTIONS (3)
  - Human herpesvirus 6 infection [Unknown]
  - Seizure [Recovered/Resolved]
  - Roseola [Unknown]

NARRATIVE: CASE EVENT DATE: 20200115
